FAERS Safety Report 8558243-1 (Version None)
Quarter: 2012Q3

REPORT INFORMATION
  Report Type: 
  Country: None (occurrence: None)
  Receive Date: 20120801
  Receipt Date: 20120727
  Transmission Date: 20120928
  Serious: Yes (Other)
  Sender: FDA-Public Use
  Company Number: PHHY2012ES064968

PATIENT
  Age: 49 Year
  Sex: Male

DRUGS (6)
  1. PAROXETINE [Concomitant]
  2. MIANSERIN [Concomitant]
  3. BISOPROLOL FUMARATE [Concomitant]
  4. DISULFIRAM [Concomitant]
  5. EPROSARTAN [Concomitant]
  6. GABAPENTIN [Suspect]
     Indication: BACK PAIN
     Dosage: UNK

REACTIONS (15)
  - MYALGIA [None]
  - RENAL IMPAIRMENT [None]
  - GENERAL PHYSICAL CONDITION ABNORMAL [None]
  - ANURIA [None]
  - ENCEPHALOPATHY [None]
  - SOMNOLENCE [None]
  - MYOCLONUS [None]
  - TREMOR [None]
  - DELIRIUM [None]
  - METABOLIC ACIDOSIS [None]
  - HYPERKALAEMIA [None]
  - RHABDOMYOLYSIS [None]
  - RENAL FAILURE ACUTE [None]
  - BLOOD PRESSURE DECREASED [None]
  - DISORIENTATION [None]
